FAERS Safety Report 10227341 (Version 3)
Quarter: 2014Q3

REPORT INFORMATION
  Report Type: Spontaneous
  Country: US (occurrence: US)
  Receive Date: 20140610
  Receipt Date: 20140801
  Transmission Date: 20150326
  Serious: No
  Sender: FDA-Public Use
  Company Number: US-PFIZER INC-2014155563

PATIENT
  Age: 75 Year
  Sex: Female
  Weight: 61.22 kg

DRUGS (1)
  1. PREMARIN [Suspect]
     Active Substance: ESTROGENS, CONJUGATED
     Indication: DYSURIA
     Dosage: 0.625 MG, THREE TIMES A WEEK
     Route: 067
     Dates: start: 20130801, end: 201308

REACTIONS (3)
  - Pruritus [Unknown]
  - Dyspepsia [Unknown]
  - Feeling abnormal [Unknown]

NARRATIVE: CASE EVENT DATE: 201308
